FAERS Safety Report 23145308 (Version 2)
Quarter: 2024Q1

REPORT INFORMATION
  Report Type: Report from Study
  Country: US (occurrence: US)
  Receive Date: 20231103
  Receipt Date: 20240208
  Transmission Date: 20240410
  Serious: Yes (Other)
  Sender: FDA-Public Use
  Company Number: US-ALXN-A202310424

PATIENT
  Sex: Female

DRUGS (1)
  1. STRENSIQ [Suspect]
     Active Substance: ASFOTASE ALFA
     Indication: Hypophosphatasia
     Dosage: UNK
     Route: 065

REACTIONS (14)
  - Haemorrhage [Unknown]
  - Gait disturbance [Unknown]
  - Calcinosis [Unknown]
  - Hypokinesia [Unknown]
  - Muscular weakness [Unknown]
  - Asthenia [Unknown]
  - Fear of falling [Unknown]
  - Injection site muscle atrophy [Unknown]
  - Product dose omission issue [Unknown]
  - Contusion [Unknown]
  - Injection site erythema [Unknown]
  - Injection site discolouration [Unknown]
  - Injection site bruising [Unknown]
  - Injection site atrophy [Unknown]
